FAERS Safety Report 24356546 (Version 1)
Quarter: 2024Q3

REPORT INFORMATION
  Report Type: Spontaneous
  Country: AT (occurrence: AT)
  Receive Date: 20240924
  Receipt Date: 20240924
  Transmission Date: 20241016
  Serious: Yes (Hospitalization)
  Sender: BOEHRINGER INGELHEIM
  Company Number: AT-BoehringerIngelheim-2024-BI-052302

PATIENT
  Age: 49 Year
  Sex: Male

DRUGS (1)
  1. OFEV [Suspect]
     Active Substance: NINTEDANIB
     Indication: Systemic sclerosis pulmonary
     Dates: start: 2019

REACTIONS (3)
  - Pyrexia [Unknown]
  - Cough [Unknown]
  - Diarrhoea [Unknown]
